FAERS Safety Report 18442388 (Version 2)
Quarter: 2021Q2

REPORT INFORMATION
  Report Type: Report from Study
  Country: US (occurrence: US)
  Receive Date: 20201029
  Receipt Date: 20210406
  Transmission Date: 20210717
  Serious: Yes (Other)
  Sender: FDA-Public Use
  Company Number: US-MYLANLABS-2020M1068606

PATIENT
  Sex: Female
  Weight: 79 kg

DRUGS (2)
  1. GLATIRAMER ACETATE INJECTION [Suspect]
     Active Substance: GLATIRAMER ACETATE
     Indication: RELAPSING-REMITTING MULTIPLE SCLEROSIS
     Dosage: 40 MILLIGRAM, 3XW
     Route: 058
  2. GLATIRAMER ACETATE INJECTION [Suspect]
     Active Substance: GLATIRAMER ACETATE
     Dosage: 40 MILLIGRAM, 3XW
     Route: 058

REACTIONS (10)
  - Multiple sclerosis [Unknown]
  - Fall [Unknown]
  - Hypoaesthesia [Unknown]
  - Device issue [Unknown]
  - Anal incontinence [Unknown]
  - Paraesthesia [Unknown]
  - Palpitations [Unknown]
  - Pain [Unknown]
  - Fatigue [Unknown]
  - Injection site pain [Recovered/Resolved]
